FAERS Safety Report 8382555-8 (Version None)
Quarter: 2012Q2

REPORT INFORMATION
  Report Type: 
  Country: None (occurrence: None)
  Receive Date: 20120524
  Receipt Date: 20120515
  Transmission Date: 20120825
  Serious: Yes (Other)
  Sender: FDA-Public Use
  Company Number: US-JNJFOC-20120506921

PATIENT
  Age: 75 Year
  Sex: Male
  Weight: 84.82 kg

DRUGS (6)
  1. CELEXA [Concomitant]
     Route: 048
  2. XARELTO [Suspect]
     Indication: ATRIAL FIBRILLATION
     Route: 048
     Dates: start: 20120120, end: 20120426
  3. PROTONIX [Concomitant]
     Route: 048
  4. XARELTO [Suspect]
     Indication: CEREBROVASCULAR ACCIDENT PROPHYLAXIS
     Route: 048
     Dates: start: 20120120, end: 20120426
  5. BYSTOLIC [Concomitant]
     Route: 048
  6. LIPITOR [Concomitant]
     Route: 048

REACTIONS (3)
  - BLOOD URINE PRESENT [None]
  - HAEMOPTYSIS [None]
  - RECTAL HAEMORRHAGE [None]
